FAERS Safety Report 24636931 (Version 1)
Quarter: 2024Q4

REPORT INFORMATION
  Report Type: Spontaneous
  Country: SA (occurrence: SA)
  Receive Date: 20241119
  Receipt Date: 20241119
  Transmission Date: 20250115
  Serious: Yes (Other)
  Sender: ABBVIE
  Company Number: SA-PFIZER INC-PV202400145658

PATIENT
  Age: 29 Month
  Sex: Male

DRUGS (10)
  1. AVIBACTAM SODIUM [Suspect]
     Active Substance: AVIBACTAM SODIUM
     Indication: Acinetobacter infection
     Route: 065
  2. AVIBACTAM SODIUM [Suspect]
     Active Substance: AVIBACTAM SODIUM
     Indication: Acinetobacter infection
     Dosage: UNK
     Route: 065
  3. AZTREONAM [Suspect]
     Active Substance: AZTREONAM
     Indication: Acinetobacter infection
     Dosage: UNK
     Route: 065
  4. BACTRIM [Suspect]
     Active Substance: SULFAMETHOXAZOLE\TRIMETHOPRIM
     Indication: Acinetobacter infection
     Dosage: UNK
     Route: 065
  5. TIGECYCLINE [Suspect]
     Active Substance: TIGECYCLINE
     Indication: Serratia infection
     Dosage: UNK
     Route: 065
  6. MEROPENEM [Suspect]
     Active Substance: MEROPENEM
     Indication: Burn infection
     Dosage: UNK
     Route: 065
  7. MEROPENEM [Suspect]
     Active Substance: MEROPENEM
     Indication: Burn infection
     Dosage: UNK
     Route: 065
  8. VANCOMYCIN [Suspect]
     Active Substance: VANCOMYCIN
     Indication: Burn infection
     Dosage: UNK
     Route: 065
  9. COLISTIN [Suspect]
     Active Substance: COLISTIN
     Indication: Burn infection
     Dosage: UNK
     Route: 065
  10. FLUCONAZOLE [Suspect]
     Active Substance: FLUCONAZOLE
     Indication: Burn infection
     Dosage: UNK
     Route: 065

REACTIONS (2)
  - Off label use [Recovered/Resolved]
  - Drug ineffective for unapproved indication [Recovered/Resolved]
